FAERS Safety Report 10606794 (Version 1)
Quarter: 2014Q4

REPORT INFORMATION
  Report Type: Spontaneous
  Country: US (occurrence: None)
  Receive Date: 20141124
  Receipt Date: 20141124
  Transmission Date: 20150529
  Serious: Yes (Disabling)
  Sender: FDA-Public Use
  Company Number: None

PATIENT
  Age: 70 Year
  Sex: Female
  Weight: 88.45 kg

DRUGS (4)
  1. LIDOCAINE PATCH [Suspect]
     Active Substance: LIDOCAINE
     Indication: KNEE ARTHROPLASTY
     Dosage: UP TO 3 PATCHES PER 24HRSA, AS NEEDED, APPLIED TO A SURFACE, USUALLY THE SKIN
     Dates: start: 20141005, end: 20141122
  2. LIDOCAINE PATCH [Suspect]
     Active Substance: LIDOCAINE
     Indication: PAIN
     Dosage: UP TO 3 PATCHES PER 24HRSA, AS NEEDED, APPLIED TO A SURFACE, USUALLY THE SKIN
     Dates: start: 20141005, end: 20141122
  3. LIDOCAINE PATCH [Suspect]
     Active Substance: LIDOCAINE
     Indication: NECK PAIN
     Dosage: UP TO 3 PATCHES PER 24HRSA, AS NEEDED, APPLIED TO A SURFACE, USUALLY THE SKIN
     Dates: start: 20141005, end: 20141122
  4. LIDOCAINE PATCH [Suspect]
     Active Substance: LIDOCAINE
     Indication: BACK PAIN
     Dosage: UP TO 3 PATCHES PER 24HRSA, AS NEEDED, APPLIED TO A SURFACE, USUALLY THE SKIN
     Dates: start: 20141005, end: 20141122

REACTIONS (3)
  - Product substitution issue [None]
  - Product quality issue [None]
  - Product adhesion issue [None]

NARRATIVE: CASE EVENT DATE: 20141122
